FAERS Safety Report 17004789 (Version 1)
Quarter: 2019Q4

REPORT INFORMATION
  Report Type: Spontaneous
  Country: US (occurrence: US)
  Receive Date: 20191107
  Receipt Date: 20191107
  Transmission Date: 20200122
  Serious: No
  Sender: FDA-Public Use
  Company Number: US-TEVA-2019-US-1124633

PATIENT
  Sex: Female
  Weight: 72.64 kg

DRUGS (2)
  1. XENAZINE [Concomitant]
     Active Substance: TETRABENAZINE
  2. AUSTEDO [Suspect]
     Active Substance: DEUTETRABENAZINE
     Indication: HUNTINGTON^S DISEASE
     Dosage: 12 MILLIGRAM DAILY;
     Route: 048
     Dates: start: 20181001

REACTIONS (1)
  - Depression [Unknown]
